FAERS Safety Report 7502551-X (Version None)
Quarter: 2011Q2

REPORT INFORMATION
  Report Type: 
  Country: None (occurrence: None)
  Receive Date: 20110517
  Receipt Date: 20110504
  Transmission Date: 20111010
  Serious: Yes (Other)
  Sender: FDA-Public Use
  Company Number: 907102

PATIENT
  Age: 65 Year
  Sex: Female
  Weight: 60 kg

DRUGS (6)
  1. MORPHINE SULFATE [Concomitant]
  2. BENADRYL [Concomitant]
  3. SOLU-MEDROL [Concomitant]
  4. FENTANYL CITRATE [Suspect]
     Indication: PAIN
     Dosage: INTRAVENOUS
     Route: 042
  5. ONDANSETRON [Concomitant]
  6. DIFLUCAN [Concomitant]

REACTIONS (1)
  - SPHINGOMONAS PAUCIMOBILIS INFECTION [None]
